FAERS Safety Report 10042172 (Version 1)
Quarter: 2014Q1

REPORT INFORMATION
  Report Type: Spontaneous
  Country: US (occurrence: US)
  Receive Date: 20140327
  Receipt Date: 20140327
  Transmission Date: 20141002
  Serious: Yes (Hospitalization)
  Sender: FDA-Public Use
  Company Number: US-GLAXOSMITHKLINE-A1065419A

PATIENT
  Age: 62 Year
  Sex: Female

DRUGS (4)
  1. FLOVENT [Suspect]
     Indication: ASTHMA
     Dosage: 1PUFF PER DAY
     Route: 055
  2. VENTOLIN [Suspect]
     Indication: ASTHMA
     Dosage: 2PUFF FOUR TIMES PER DAY
     Route: 055
  3. BLOOD THINNER [Concomitant]
  4. MEDICATION FOR HIGH BLOOD PRESSURE [Concomitant]

REACTIONS (11)
  - Coronary arterial stent insertion [Recovered/Resolved]
  - Coronary artery occlusion [Recovered/Resolved]
  - Nausea [Recovered/Resolved]
  - Diarrhoea [Recovered/Resolved]
  - Cough [Recovered/Resolved]
  - Dyspnoea [Recovered/Resolved]
  - Oxygen saturation decreased [Recovered/Resolved]
  - Lung disorder [Recovered/Resolved]
  - Ill-defined disorder [Recovered/Resolved]
  - Fear [Recovered/Resolved]
  - Malaise [Recovered/Resolved]
